FAERS Safety Report 7535329-1 (Version None)
Quarter: 2011Q2

REPORT INFORMATION
  Report Type: 
  Country: None (occurrence: None)
  Receive Date: 20110609
  Receipt Date: 20080327
  Transmission Date: 20111010
  Serious: Yes (Death)
  Sender: FDA-Public Use
  Company Number: PHHY2008CA03152

PATIENT
  Sex: Male

DRUGS (6)
  1. MIRTAZAPINE [Concomitant]
     Dosage: 30 MG
  2. CLOZAPINE [Suspect]
     Indication: SCHIZOPHRENIA
     Dosage: 500 MG
     Route: 048
     Dates: start: 19960205
  3. LOXAPINE HCL [Concomitant]
  4. POTASSIUM CHLORIDE [Concomitant]
     Dosage: 20 ML
  5. HALOPERIDOL [Concomitant]
     Dosage: 2 MG
  6. QUETIAPINE [Concomitant]
     Dosage: 700 MG

REACTIONS (1)
  - DEATH [None]
